FAERS Safety Report 6064943-8 (Version None)
Quarter: 2009Q1

REPORT INFORMATION
  Report Type: 
  Country: None (occurrence: None)
  Receive Date: 20090204
  Receipt Date: 20090127
  Transmission Date: 20090719
  Serious: Yes (Hospitalization, Other)
  Sender: FDA-Public Use
  Company Number: US-MERCK-0808USA02336

PATIENT
  Age: 60 Year
  Sex: Female

DRUGS (10)
  1. FOSAMAX [Suspect]
     Indication: OSTEOPOROSIS
     Route: 048
     Dates: start: 20001106, end: 20050103
  2. FOSAMAX [Suspect]
     Indication: OSTEOPENIA
     Route: 048
     Dates: start: 20001106, end: 20050103
  3. PERCOCET [Concomitant]
     Indication: BACK PAIN
     Route: 065
     Dates: start: 19840101, end: 20050101
  4. HORMONES (UNSPECIFIED) [Concomitant]
     Route: 065
     Dates: start: 19580101
  5. NORVASC [Concomitant]
     Indication: HYPERTENSION
     Route: 065
     Dates: start: 19890101
  6. LIPITOR [Concomitant]
     Indication: BLOOD CHOLESTEROL INCREASED
     Route: 065
     Dates: start: 19890101
  7. KLOR-CON [Concomitant]
     Route: 065
     Dates: start: 19890101
  8. KLONOPIN [Concomitant]
     Route: 065
     Dates: start: 19890101
  9. PROTONIX [Concomitant]
     Route: 065
     Dates: start: 19890101
  10. CARAFATE [Concomitant]
     Route: 065
     Dates: start: 19890101

REACTIONS (14)
  - ADVERSE DRUG REACTION [None]
  - ANKLE FRACTURE [None]
  - ANXIETY [None]
  - ARTHROPATHY [None]
  - ASTHMA [None]
  - DEPRESSION [None]
  - DIABETES MELLITUS [None]
  - ORAL TORUS [None]
  - OSTEOMYELITIS [None]
  - OSTEONECROSIS [None]
  - PNEUMONIA [None]
  - PNEUMONIA ASPIRATION [None]
  - URINARY TRACT DISORDER [None]
  - WEIGHT INCREASED [None]
